FAERS Safety Report 12172197 (Version 1)
Quarter: 2016Q1

REPORT INFORMATION
  Report Type: Spontaneous
  Country: US (occurrence: None)
  Receive Date: 20160310
  Receipt Date: 20160310
  Transmission Date: 20160526
  Serious: Yes (Hospitalization)
  Sender: FDA-Public Use
  Company Number: None

PATIENT
  Age: 71 Year
  Sex: Female

DRUGS (2)
  1. CAPECITABINE 150MG TEVA [Suspect]
     Active Substance: CAPECITABINE
     Dosage: 150MG BID X 14 DAYS ON, 7 DAYS ORALLY
     Route: 048
     Dates: start: 20160128, end: 20160210
  2. CAPECITABINE 500MG TEVA [Suspect]
     Active Substance: CAPECITABINE
     Dosage: 2000MG (4 X 500MG TABS) BID X 14 DAYS ON, 7 DAYS ORALLY
     Route: 048
     Dates: start: 20160128, end: 20160210

REACTIONS (2)
  - Dehydration [None]
  - Diarrhoea [None]

NARRATIVE: CASE EVENT DATE: 20160210
